FAERS Safety Report 18595077 (Version 1)
Quarter: 2020Q4

REPORT INFORMATION
  Report Type: Spontaneous
  Country: US (occurrence: US)
  Receive Date: 20201209
  Receipt Date: 20201209
  Transmission Date: 20210114
  Serious: No
  Sender: FDA-Public Use
  Company Number: US-RISING PHARMA HOLDINGS, INC.-US2020RIS000215

PATIENT
  Age: 40 Year
  Sex: Female

DRUGS (6)
  1. CROMOLYN SODIUM. [Suspect]
     Active Substance: CROMOLYN SODIUM
     Dosage: 5 UNK
     Dates: start: 202003
  2. METHIMAZOLE. [Suspect]
     Active Substance: METHIMAZOLE
     Dosage: ^TAKING JUST HALF DOSES^
     Dates: start: 202003
  3. 2 UNSPECIFIED DIETARY SUPPLEMENTS [Concomitant]
  4. CROMOLYN SODIUM. [Suspect]
     Active Substance: CROMOLYN SODIUM
     Indication: MAST CELL ACTIVATION SYNDROME
     Dosage: 10 ML, 4X/DAY
     Route: 048
     Dates: start: 2013, end: 202003
  5. 7 UNSPECIFIED MEDICATIONS [Concomitant]
  6. METHIMAZOLE. [Suspect]
     Active Substance: METHIMAZOLE
     Dosage: UNK
     Dates: end: 202003

REACTIONS (5)
  - Swelling face [Not Recovered/Not Resolved]
  - Abdominal discomfort [Not Recovered/Not Resolved]
  - Intentional product use issue [Not Recovered/Not Resolved]
  - Periorbital swelling [Not Recovered/Not Resolved]
  - Eye swelling [Not Recovered/Not Resolved]

NARRATIVE: CASE EVENT DATE: 202003
